FAERS Safety Report 25840496 (Version 2)
Quarter: 2025Q4

REPORT INFORMATION
  Report Type: Spontaneous
  Country: US (occurrence: US)
  Receive Date: 20250924
  Receipt Date: 20251009
  Transmission Date: 20260118
  Serious: No
  Sender: Haleon PLC
  Company Number: US-HALEON-2264099

PATIENT

DRUGS (1)
  1. TUMS CHEWY BITES ASSORTED BERRIES [Suspect]
     Active Substance: CALCIUM CARBONATE
     Indication: Dyspepsia

REACTIONS (3)
  - Oral pain [Unknown]
  - Product packaging issue [Unknown]
  - Tooth injury [Unknown]

NARRATIVE: CASE EVENT DATE: 20250919
